FAERS Safety Report 9555743 (Version 1)
Quarter: 2013Q3

REPORT INFORMATION
  Report Type: Spontaneous
  Country: JP (occurrence: JP)
  Receive Date: 20130926
  Receipt Date: 20130926
  Transmission Date: 20140515
  Serious: Yes (Congenital Anomaly)
  Sender: FDA-Public Use
  Company Number: PHHY2013JP106967

PATIENT
  Sex: 0

DRUGS (1)
  1. LETROZOLE [Suspect]
     Dosage: 5 MG, PER DAY (MOTHER DOSE)

REACTIONS (2)
  - Trisomy 21 [Unknown]
  - Foetal exposure during pregnancy [Unknown]
